FAERS Safety Report 4628268-7 (Version None)
Quarter: 2005Q2

REPORT INFORMATION
  Report Type: 
  Country: None (occurrence: None)
  Receive Date: 20050406
  Receipt Date: 20050328
  Transmission Date: 20051028
  Serious: Yes (Other)
  Sender: FDA-Public Use
  Company Number: US-JNJFOC-20050307458

PATIENT
  Sex: Female
  Weight: 56.7 kg

DRUGS (3)
  1. TOPAMAX [Suspect]
     Route: 049
  2. TOPAMAX [Suspect]
     Route: 049
  3. HORMONE REPLACEMENT THERAPY [Concomitant]

REACTIONS (9)
  - BLINDNESS [None]
  - DIZZINESS [None]
  - EYE PAIN [None]
  - EYE SWELLING [None]
  - MYDRIASIS [None]
  - NAUSEA [None]
  - PARAESTHESIA [None]
  - TOOTH DISORDER [None]
  - VISION BLURRED [None]
